FAERS Safety Report 25362420 (Version 1)
Quarter: 2025Q2

REPORT INFORMATION
  Report Type: Spontaneous
  Country: DE (occurrence: DE)
  Receive Date: 20250527
  Receipt Date: 20250527
  Transmission Date: 20250717
  Serious: Yes (Death)
  Sender: SANDOZ
  Company Number: DE-MEDAC-2023000266

PATIENT
  Age: 72 Year
  Sex: Female

DRUGS (2)
  1. METHOTREXATE [Suspect]
     Active Substance: METHOTREXATE
     Indication: Psoriasis
     Dosage: THE FAMILY DOCTOR HAD PRESCRIBED 10 MG  MTX ONCE A WEEK - BUT IN THE MEDICATION  PLAN OF THE CLINIC
     Route: 065
  2. METHOTREXATE [Suspect]
     Active Substance: METHOTREXATE
     Indication: Rheumatic disorder

REACTIONS (3)
  - Death [Fatal]
  - Inappropriate schedule of product administration [Fatal]
  - Accidental overdose [Fatal]

NARRATIVE: CASE EVENT DATE: 20200101
